FAERS Safety Report 23961748 (Version 2)
Quarter: 2024Q4

REPORT INFORMATION
  Report Type: Report from Study
  Country: BR (occurrence: BR)
  Receive Date: 20240611
  Receipt Date: 20241003
  Transmission Date: 20250114
  Serious: Yes (Death, Other)
  Sender: JOHNSON AND JOHNSON
  Company Number: BR-JNJFOC-20240621368

PATIENT

DRUGS (8)
  1. DARATUMUMAB [Suspect]
     Active Substance: DARATUMUMAB
     Indication: Plasma cell myeloma refractory
     Dosage: EVERY WEEK IN CYCLES 1 THROUGH 3, EVERY 3 WEEKS IN CYCLES 4 THROUGH 8, AND EVERY 4 WEEKS IN CYCLE 9
     Route: 042
  2. VELCADE [Suspect]
     Active Substance: BORTEZOMIB
     Indication: Plasma cell myeloma refractory
     Dosage: DAYS 1, 4, 8, AND 11 OF 21-DAY CYCLES
     Route: 058
  3. BELANTAMAB MAFODOTIN [Suspect]
     Active Substance: BELANTAMAB MAFODOTIN
     Indication: Plasma cell myeloma refractory
     Dosage: DAY 1 OF 21-DAY CYCLES
     Route: 042
  4. BELANTAMAB MAFODOTIN [Suspect]
     Active Substance: BELANTAMAB MAFODOTIN
     Route: 042
  5. DEXAMETHASONE [Suspect]
     Active Substance: DEXAMETHASONE
     Indication: Plasma cell myeloma refractory
     Route: 048
  6. LENALIDOMIDE [Suspect]
     Active Substance: LENALIDOMIDE
     Indication: Plasma cell myeloma refractory
     Route: 065
  7. CARFILZOMIB [Suspect]
     Active Substance: CARFILZOMIB
     Indication: Plasma cell myeloma refractory
     Route: 065
  8. POMALIDOMIDE [Suspect]
     Active Substance: POMALIDOMIDE
     Indication: Plasma cell myeloma refractory
     Route: 065

REACTIONS (29)
  - Adverse event [Fatal]
  - Neuropathy peripheral [Unknown]
  - Polyneuropathy [Unknown]
  - Pneumonia [Unknown]
  - COVID-19 pneumonia [Unknown]
  - Thrombocytopenia [Unknown]
  - Cataract [Unknown]
  - Vision blurred [Unknown]
  - Anaemia [Unknown]
  - Diarrhoea [Unknown]
  - Peripheral sensory neuropathy [Unknown]
  - Constipation [Unknown]
  - COVID-19 [Unknown]
  - Fatigue [Unknown]
  - Dry eye [Unknown]
  - Upper respiratory tract infection [Unknown]
  - Pyrexia [Unknown]
  - Nausea [Unknown]
  - Insomnia [Unknown]
  - Aspartate aminotransferase increased [Unknown]
  - Infusion related reaction [Unknown]
  - Back pain [Unknown]
  - Photophobia [Unknown]
  - Eye irritation [Unknown]
  - Sensation of foreign body [Unknown]
  - Eye pain [Unknown]
  - Alanine aminotransferase increased [Unknown]
  - Gamma-glutamyltransferase increased [Unknown]
  - Eye disorder [Recovering/Resolving]
